FAERS Safety Report 8961109 (Version 1)
Quarter: 2012Q4

REPORT INFORMATION
  Report Type: 
  Country: NL (occurrence: NL)
  Receive Date: 20121212
  Receipt Date: 20121212
  Transmission Date: 20130627
  Serious: Yes (Hospitalization)
  Sender: FDA-Public Use
  Company Number: NL-PFIZER INC-2012308583

PATIENT
  Age: 47 Year
  Sex: Female
  Weight: 64 kg

DRUGS (10)
  1. GENOTROPIN [Suspect]
     Indication: GROWTH HORMONE DEFICIENCY
     Dosage: 0.4 mg, 1x/day,7 injections/week
     Route: 058
     Dates: start: 20051101
  2. HYDROCORTISONE [Concomitant]
     Indication: ACTH DECREASED
     Dosage: UNK
     Dates: start: 20000901
  3. FLUDROCORTISONE [Concomitant]
     Indication: ACTH DECREASED
     Dosage: UNK
     Dates: start: 20000901
  4. PANTOPRAZOL [Concomitant]
     Indication: GASTROESOPHAGEAL REFLUX DISEASE
     Dosage: UNK
     Dates: start: 20010212
  5. POTASSIUM [Concomitant]
     Indication: HYPOKALAEMIA
     Dosage: UNK
     Dates: start: 20010212
  6. VITAMIN B12 [Concomitant]
     Indication: VITAMIN B12 DEFICIENCY
     Dosage: UNK
     Dates: start: 20030801
  7. LOSARTAN [Concomitant]
     Indication: HYPERTENSION
     Dosage: UNK
     Dates: start: 20051101
  8. RISPERDAL [Concomitant]
     Indication: PSYCHOTIC DISORDER
     Dosage: UNK
     Dates: start: 20030307
  9. LEVOTHYROXINE [Concomitant]
     Indication: TSH DECREASED
     Dosage: UNK
     Dates: start: 20010301
  10. LEVOTHYROXINE [Concomitant]
     Indication: PRIMARY HYPOTHYROIDISM

REACTIONS (1)
  - Depression [Unknown]
